FAERS Safety Report 6754699-5 (Version None)
Quarter: 2010Q2

REPORT INFORMATION
  Report Type: 
  Country: None (occurrence: None)
  Receive Date: 20100603
  Receipt Date: 20100601
  Transmission Date: 20101027
  Serious: Yes (Other)
  Sender: FDA-Public Use
  Company Number: FR-ROXANE LABORATORIES, INC.-2010-RO-00655RO

PATIENT
  Age: 65 Year
  Sex: Male

DRUGS (2)
  1. LOSARTAN POTASSIUM AND HYDROCHLOROTHIAZIDE [Suspect]
     Indication: HYPERTENSION
  2. RANITIDINE [Suspect]

REACTIONS (2)
  - ACUTE MYOCARDIAL INFARCTION [None]
  - SKIN DISORDER [None]
